FAERS Safety Report 20712870 (Version 1)
Quarter: 2022Q2

REPORT INFORMATION
  Report Type: Spontaneous
  Country: US (occurrence: US)
  Receive Date: 20220415
  Receipt Date: 20220415
  Transmission Date: 20220721
  Serious: No
  Sender: FDA-Public Use
  Company Number: US-GSKCCFUS-Case-01343536_AE-77939

PATIENT
  Sex: Female

DRUGS (1)
  1. ADVAIR DISKUS [Suspect]
     Active Substance: FLUTICASONE PROPIONATE\SALMETEROL XINAFOATE
     Indication: Chronic obstructive pulmonary disease
     Dosage: UNK, 250/50, SHE DID NOT USE HER ADVAIR DISKUS 250/50 AS OFTEN AS SHE WAS PRESCRIBED

REACTIONS (2)
  - Inappropriate schedule of product administration [Unknown]
  - Inability to afford medication [Unknown]
